FAERS Safety Report 10025507 (Version 1)
Quarter: 2014Q1

REPORT INFORMATION
  Report Type: Spontaneous
  Country: DE (occurrence: DE)
  Receive Date: 20140320
  Receipt Date: 20140320
  Transmission Date: 20141002
  Serious: Yes (Other)
  Sender: FDA-Public Use
  Company Number: DE-ROCHE-1365174

PATIENT
  Sex: Female

DRUGS (3)
  1. AVASTIN [Suspect]
     Indication: OVARIAN CANCER
     Route: 065
  2. GEMCITABINE [Concomitant]
     Indication: OVARIAN CANCER
  3. CARBOPLATIN [Concomitant]
     Indication: OVARIAN CANCER

REACTIONS (1)
  - Glomerulonephritis [Unknown]
